FAERS Safety Report 4802104-8 (Version None)
Quarter: 2005Q4

REPORT INFORMATION
  Report Type: 
  Country: None (occurrence: None)
  Receive Date: 20051018
  Receipt Date: 20050928
  Transmission Date: 20060501
  Serious: Yes (Other)
  Sender: FDA-Public Use
  Company Number: PHBS2005JP14319

PATIENT
  Age: 60 Year
  Sex: Male

DRUGS (4)
  1. NEORAL [Suspect]
     Indication: NEPHROTIC SYNDROME
     Dosage: 200 MG/D
     Route: 048
     Dates: start: 20040914, end: 20041008
  2. PREDNISOLONE [Suspect]
     Indication: NEPHROTIC SYNDROME
     Dosage: 1000 MG/DAY
     Route: 048
     Dates: start: 20040813, end: 20040815
  3. PREDNISOLONE [Suspect]
     Dosage: 60 MG/D
     Route: 048
     Dates: start: 20040816, end: 20040823
  4. PREDNISOLONE [Suspect]
     Dosage: 1000 MG/D
     Route: 048
     Dates: start: 20040824, end: 20040826

REACTIONS (2)
  - CYTOMEGALOVIRUS INFECTION [None]
  - FOCAL GLOMERULOSCLEROSIS [None]
